FAERS Safety Report 21651248 (Version 1)
Quarter: 2022Q4

REPORT INFORMATION
  Report Type: Report from Study
  Country: US (occurrence: US)
  Receive Date: 20221128
  Receipt Date: 20221128
  Transmission Date: 20230113
  Serious: No
  Sender: FDA-Public Use
  Company Number: US-ABBVIE-4161114

PATIENT
  Sex: Female

DRUGS (1)
  1. HUMIRA [Suspect]
     Active Substance: ADALIMUMAB
     Indication: Product used for unknown indication
     Dosage: EVENT START DATE SHOULD BE 2022.
     Route: 058
     Dates: start: 202206

REACTIONS (3)
  - Subcutaneous drug absorption impaired [Unknown]
  - Pain [Unknown]
  - Peripheral swelling [Unknown]
